FAERS Safety Report 19256222 (Version 3)
Quarter: 2022Q2

REPORT INFORMATION
  Report Type: Report from Study
  Country: CA (occurrence: CA)
  Receive Date: 20210514
  Receipt Date: 20220414
  Transmission Date: 20220721
  Serious: Yes (Other)
  Sender: FDA-Public Use
  Company Number: CA-ABBVIE-21K-028-3900741-00

PATIENT
  Age: 58 Year
  Sex: Male
  Weight: 73 kg

DRUGS (3)
  1. HUMIRA [Suspect]
     Active Substance: ADALIMUMAB
     Indication: Crohn^s disease
     Route: 058
     Dates: start: 20190711, end: 202012
  2. HUMIRA [Suspect]
     Active Substance: ADALIMUMAB
     Route: 058
  3. MESALAMINE [Suspect]
     Active Substance: MESALAMINE
     Indication: Product used for unknown indication
     Route: 065

REACTIONS (23)
  - Hepatic cirrhosis [Not Recovered/Not Resolved]
  - Total bile acids increased [Not Recovered/Not Resolved]
  - Impaired work ability [Unknown]
  - General physical health deterioration [Unknown]
  - Impaired quality of life [Unknown]
  - Pelvic congestion [Unknown]
  - Cholangitis sclerosing [Unknown]
  - Eye pruritus [Unknown]
  - Feeling abnormal [Unknown]
  - Chromaturia [Unknown]
  - Melanocytic naevus [Unknown]
  - Inflammatory bowel disease [Unknown]
  - Stress [Unknown]
  - Therapeutic response shortened [Not Recovered/Not Resolved]
  - Arthralgia [Not Recovered/Not Resolved]
  - Eyelid pain [Unknown]
  - COVID-19 [Not Recovered/Not Resolved]
  - Gastrointestinal pain [Not Recovered/Not Resolved]
  - Injection site pain [Not Recovered/Not Resolved]
  - Eye pain [Unknown]
  - Nasopharyngitis [Recovered/Resolved]
  - Abdominal pain [Unknown]
  - Back pain [Unknown]

NARRATIVE: CASE EVENT DATE: 20201226
